FAERS Safety Report 4424087-5 (Version None)
Quarter: 2004Q3

REPORT INFORMATION
  Report Type: 
  Country: None (occurrence: None)
  Receive Date: 20040812
  Receipt Date: 20031020
  Transmission Date: 20050211
  Serious: Yes (Hospitalization)
  Sender: FDA-Public Use
  Company Number: PHBS2003BE11508

PATIENT
  Age: 76 Year
  Sex: Female

DRUGS (4)
  1. CIPRAMIL [Concomitant]
  2. ZELMAC [Suspect]
     Dosage: 6 MG, QD
     Route: 048
     Dates: start: 20020101, end: 20031013
  3. COVERSYL [Suspect]
  4. ENEMA [Suspect]

REACTIONS (8)
  - APATHY [None]
  - BRADYCARDIA [None]
  - DIFFICULTY IN WALKING [None]
  - GENERAL PHYSICAL HEALTH DETERIORATION [None]
  - HEADACHE [None]
  - HYPONATRAEMIA [None]
  - INAPPROPRIATE ANTIDIURETIC HORMONE SECRETION [None]
  - URINE SODIUM INCREASED [None]
